FAERS Safety Report 6334491-6 (Version None)
Quarter: 2009Q3

REPORT INFORMATION
  Report Type: 
  Country: None (occurrence: None)
  Receive Date: 20090831
  Receipt Date: 20090824
  Transmission Date: 20100115
  Serious: Yes (Disabling, Other)
  Sender: FDA-Public Use
  Company Number: US-ALLERGAN-0911736US

PATIENT
  Age: 62 Year
  Sex: Female

DRUGS (9)
  1. BOTOX COSMETIC [Suspect]
     Indication: SKIN WRINKLING
     Dosage: 75 UNITS, SINGLE
     Route: 030
     Dates: start: 20090622, end: 20090622
  2. ZOLOFT [Concomitant]
  3. CRESTOR [Concomitant]
  4. ZETIA [Concomitant]
  5. ATENOLOL [Concomitant]
  6. PREVACID [Concomitant]
  7. ASPIRIN [Concomitant]
  8. CHLOR-TRIMETON [Concomitant]
  9. BENADRYL [Concomitant]

REACTIONS (4)
  - ASPIRATION [None]
  - ASTHENIA [None]
  - DYSPHAGIA [None]
  - FATIGUE [None]
